FAERS Safety Report 13255479 (Version 1)
Quarter: 2017Q1

REPORT INFORMATION
  Report Type: Spontaneous
  Country: US (occurrence: US)
  Receive Date: 20170217
  Receipt Date: 20170217
  Transmission Date: 20170428
  Serious: No
  Sender: FDA-Public Use
  Company Number: None

PATIENT
  Age: 52 Year
  Sex: Male

DRUGS (1)
  1. HUMIRA [Suspect]
     Active Substance: ADALIMUMAB
     Indication: PSORIATIC ARTHROPATHY
     Dosage: 40MG 80MG DAY 1, 40MG DAY 8 SUBCUT
     Route: 058
     Dates: start: 20170129, end: 20170215

REACTIONS (4)
  - Pain in jaw [None]
  - Impaired work ability [None]
  - Trismus [None]
  - Pain [None]

NARRATIVE: CASE EVENT DATE: 20170205
